FAERS Safety Report 5272954-5 (Version None)
Quarter: 2007Q1

REPORT INFORMATION
  Report Type: 
  Country: None (occurrence: None)
  Receive Date: 20061219
  Receipt Date: 20061009
  Transmission Date: 20070707
  Serious: Yes (Hospitalization, Other)
  Sender: FDA-Public Use
  Company Number: US-JNJFOC-20061002167

PATIENT
  Age: 32 Year
  Sex: Female
  Weight: 57.1532 kg

DRUGS (7)
  1. ORTHO EVRA [Suspect]
     Indication: MENSTRUATION IRREGULAR
     Dosage: TRANSDERMAL
     Route: 062
     Dates: start: 20030618, end: 20040211
  2. ORTHO-CYCLEN (NORGESTIMATE/WETHINYL ESTRADIOL)TABLETS [Suspect]
     Indication: MENSTRUATION IRREGULAR
     Dosage: ORAL
     Route: 048
     Dates: start: 20040211
  3. PERCOCET [Concomitant]
  4. FLAGYL [Concomitant]
  5. MOTRIN [Concomitant]
  6. MACROBID [Concomitant]
  7. FLAGYL [Concomitant]

REACTIONS (3)
  - POLYMENORRHOEA [None]
  - PREMENSTRUAL SYNDROME [None]
  - VENOUS THROMBOSIS [None]
